FAERS Safety Report 4787195-5 (Version None)
Quarter: 2005Q4

REPORT INFORMATION
  Report Type: 
  Country: None (occurrence: None)
  Receive Date: 20051004
  Receipt Date: 20050912
  Transmission Date: 20060501
  Serious: No
  Sender: FDA-Public Use
  Company Number: ES-BRISTOL-MYERS SQUIBB COMPANY-13118104

PATIENT
  Sex: Male

DRUGS (1)
  1. LIPEMOL [Suspect]
     Indication: HYPERCHOLESTEROLAEMIA
     Route: 048
     Dates: start: 20050101, end: 20050801

REACTIONS (1)
  - MYOSITIS [None]
